FAERS Safety Report 7783478-5 (Version None)
Quarter: 2011Q3

REPORT INFORMATION
  Report Type: 
  Country: None (occurrence: None)
  Receive Date: 20110928
  Receipt Date: 20110922
  Transmission Date: 20111222
  Serious: Yes (Hospitalization)
  Sender: FDA-Public Use
  Company Number: DE-PFIZER INC-2011226499

PATIENT
  Age: 69 Year
  Sex: Female

DRUGS (10)
  1. RITUXIMAB [Suspect]
     Indication: LYMPHOMA
     Dosage: 700 MG (325 MG/M2) 1X/DAY
     Route: 042
     Dates: start: 20110818
  2. COLESTYRAMINE [Concomitant]
  3. VINCRISTINE SULFATE [Suspect]
     Indication: LYMPHOMA
     Dosage: 2 MG, 1X/DAY
     Route: 042
     Dates: start: 20110819
  4. QUETIAPINE [Concomitant]
  5. DIAZEPAM [Concomitant]
  6. CYCLOPHOSPHAMIDE [Suspect]
     Indication: LYMPHOMA
     Dosage: 750 MG/M2, 1X/DAY
     Route: 042
     Dates: start: 20110819
  7. MIRTAZAPINE [Concomitant]
  8. BISOPROLOL [Concomitant]
  9. DOXORUBICIN HCL [Suspect]
     Indication: LYMPHOMA
     Dosage: 50 MG/M2, 1X/DAY
     Route: 042
     Dates: start: 20110819
  10. PREDNISONE [Suspect]
     Indication: LYMPHOMA
     Dosage: 100 MG, 1X/DAY
     Route: 048
     Dates: start: 20110819

REACTIONS (7)
  - DIARRHOEA [None]
  - VOMITING [None]
  - SYNCOPE [None]
  - LEUKOPENIA [None]
  - NAUSEA [None]
  - HYPONATRAEMIA [None]
  - HYPOKALAEMIA [None]
